FAERS Safety Report 20495707 (Version 1)
Quarter: 2022Q1

REPORT INFORMATION
  Report Type: Report from Study
  Country: CA (occurrence: CA)
  Receive Date: 20220221
  Receipt Date: 20220221
  Transmission Date: 20220423
  Serious: Yes (Hospitalization, Other)
  Sender: FDA-Public Use
  Company Number: CA-JNJFOC-20211139173

PATIENT
  Age: 69 Year
  Sex: Male

DRUGS (4)
  1. IMBRUVICA [Interacting]
     Active Substance: IBRUTINIB
     Indication: Mantle cell lymphoma
     Route: 048
     Dates: start: 20201022, end: 20201022
  2. IMBRUVICA [Interacting]
     Active Substance: IBRUTINIB
     Indication: Non-Hodgkin^s lymphoma
     Route: 048
     Dates: start: 202010
  3. IMBRUVICA [Interacting]
     Active Substance: IBRUTINIB
     Route: 048
  4. PLAVIX [Interacting]
     Active Substance: CLOPIDOGREL BISULFATE
     Indication: Product used for unknown indication
     Route: 065

REACTIONS (6)
  - Haemorrhage [Unknown]
  - Coronary artery bypass [Recovering/Resolving]
  - Cardiac disorder [Unknown]
  - Drug interaction [Unknown]
  - Off label use [Unknown]
  - Incorrect dose administered [Unknown]

NARRATIVE: CASE EVENT DATE: 20220130
